FAERS Safety Report 19849563 (Version 2)
Quarter: 2021Q3

REPORT INFORMATION
  Report Type: Spontaneous
  Country: SA (occurrence: SA)
  Receive Date: 20210917
  Receipt Date: 20210927
  Transmission Date: 20211014
  Serious: Yes (Life-Threatening, Hospitalization, Other)
  Sender: FDA-Public Use
  Company Number: SA-BAUSCH-BL-2021-031315

PATIENT
  Age: 36 Year
  Sex: Female

DRUGS (14)
  1. RANITIDINE. [Interacting]
     Active Substance: RANITIDINE
     Indication: GASTROOESOPHAGEAL REFLUX DISEASE
  2. TETRACYCLINE [Concomitant]
     Active Substance: TETRACYCLINE
     Indication: PRODUCT USED FOR UNKNOWN INDICATION
     Route: 065
     Dates: start: 1998
  3. CISAPRIDE [Interacting]
     Active Substance: CISAPRIDE
     Indication: DYSPEPSIA
     Route: 065
     Dates: start: 19981201, end: 19981207
  4. METRONIDAZOLE. [Suspect]
     Active Substance: METRONIDAZOLE
     Indication: HAEMATOMA INFECTION
     Route: 065
     Dates: start: 1998
  5. AMIODARONE HYDROCHLORIDE. [Interacting]
     Active Substance: AMIODARONE HYDROCHLORIDE
     Indication: PRODUCT USED FOR UNKNOWN INDICATION
     Route: 065
     Dates: start: 199812
  6. CISAPRIDE [Interacting]
     Active Substance: CISAPRIDE
     Indication: GASTROOESOPHAGEAL REFLUX DISEASE
  7. SULFAMETHOXAZOLE [Concomitant]
     Active Substance: SULFAMETHOXAZOLE
     Indication: PRODUCT USED FOR UNKNOWN INDICATION
     Route: 065
     Dates: start: 1998
  8. METRONIDAZOLE. [Interacting]
     Active Substance: METRONIDAZOLE
     Indication: ABDOMINAL WALL HAEMATOMA
  9. METRONIDAZOLE. [Interacting]
     Active Substance: METRONIDAZOLE
     Indication: ABDOMINAL WALL INFECTION
  10. RANITIDINE. [Interacting]
     Active Substance: RANITIDINE
     Indication: DYSPEPSIA
     Route: 065
     Dates: start: 19981201
  11. METOCLOPRAMIDE. [Concomitant]
     Active Substance: METOCLOPRAMIDE
     Indication: PRODUCT USED FOR UNKNOWN INDICATION
     Route: 065
  12. ONDANSETRON [Concomitant]
     Active Substance: ONDANSETRON
     Indication: PRODUCT USED FOR UNKNOWN INDICATION
     Route: 065
  13. LOPERAMIDE [Concomitant]
     Active Substance: LOPERAMIDE
     Indication: PRODUCT USED FOR UNKNOWN INDICATION
     Route: 065
     Dates: start: 1998
  14. NITROFURANTOIN. [Concomitant]
     Active Substance: NITROFURANTOIN
     Indication: PRODUCT USED FOR UNKNOWN INDICATION
     Route: 065
     Dates: start: 1998

REACTIONS (2)
  - Torsade de pointes [Recovered/Resolved]
  - Circulatory collapse [Recovered/Resolved]

NARRATIVE: CASE EVENT DATE: 19981203
